FAERS Safety Report 8925167 (Version 2)
Quarter: 2012Q4

REPORT INFORMATION
  Report Type: 
  Country: US (occurrence: US)
  Receive Date: 20121126
  Receipt Date: 20121213
  Transmission Date: 20130627
  Serious: Yes (Other)
  Sender: FDA-Public Use
  Company Number: US-ASTELLAS-2012US011328

PATIENT
  Age: 33 Year
  Sex: Male
  Weight: 111 kg

DRUGS (4)
  1. PROGRAF [Suspect]
     Indication: RENAL TRANSPLANT
     Dosage: 5 mg, UID/QD
     Route: 048
  2. PROGRAF [Suspect]
     Dosage: 3 mg in AM/2 mg in PM
     Route: 048
  3. CELLCEPT                           /01275102/ [Concomitant]
     Indication: PRODUCT USED FOR UNKNOWN INDICATION
     Dosage: 500 mg, qid
     Route: 048
     Dates: start: 20110617
  4. DELTASONE                          /00044701/ [Concomitant]
     Indication: PRODUCT USED FOR UNKNOWN INDICATION
     Dosage: 5 mg, UID/QD
     Route: 048
     Dates: start: 20111118

REACTIONS (13)
  - Pancreas transplant [Unknown]
  - Pancreatic insufficiency [Unknown]
  - Hypertensive nephropathy [Unknown]
  - Transplant failure [Unknown]
  - Hypertension [Unknown]
  - Erectile dysfunction [Unknown]
  - Skin lesion [Unknown]
  - Blood glucose increased [Unknown]
  - Rash [Unknown]
  - Glycosylated haemoglobin increased [Unknown]
  - Hypercholesterolaemia [Unknown]
  - Body tinea [Unknown]
  - Haematuria [Unknown]
